FAERS Safety Report 23259520 (Version 1)
Quarter: 2023Q4

REPORT INFORMATION
  Report Type: Report from Study
  Country: IT (occurrence: IT)
  Receive Date: 20231204
  Receipt Date: 20231204
  Transmission Date: 20240110
  Serious: Yes (Death, Other)
  Sender: FDA-Public Use
  Company Number: IT-PFIZER INC-PV202300195584

PATIENT

DRUGS (4)
  1. OXALIPLATIN [Suspect]
     Active Substance: OXALIPLATIN
     Indication: Adenocarcinoma pancreas
     Dosage: 60 MG/M2 IN 120 MINUTES ON DAYS 1 AND 15 OF EACH CYCLE
     Route: 042
  2. IRINOTECAN [Suspect]
     Active Substance: IRINOTECAN
     Dosage: 43 MG/M2 IV OVER 90 MINUTES ON DAYS 1 AND 15 OF EACH CYCLE
     Route: 042
  3. LEUCOVORIN CALCIUM [Suspect]
     Active Substance: LEUCOVORIN CALCIUM
     Dosage: 200 MG/M2 IV OVER 30 MINUTES ON DAYS 1 AND 15 OF EACH CYCLE
     Route: 042
  4. FLUOROURACIL [Suspect]
     Active Substance: FLUOROURACIL
     Dosage: 2400 MG/M2 IV OVER 46 HOURS ON DAYS 1 AND 15 OF EACH CYCLE

REACTIONS (2)
  - Febrile neutropenia [Fatal]
  - Sepsis [Fatal]
